FAERS Safety Report 12544655 (Version 2)
Quarter: 2020Q2

REPORT INFORMATION
  Report Type: Spontaneous
  Country: GB (occurrence: GB)
  Receive Date: 20160711
  Receipt Date: 20200517
  Transmission Date: 20200713
  Serious: Yes (Other)
  Sender: FDA-Public Use
  Company Number: GB-AUROBINDO-AUR-APL-2016-08575

PATIENT
  Age: 39 Year
  Sex: Female

DRUGS (16)
  1. PAROXETINE TABLET [Suspect]
     Active Substance: PAROXETINE
     Dosage: 8 MILLIGRAM, DAILY
     Route: 065
  2. PAROXETINE HYDROCHLORIDE. [Suspect]
     Active Substance: PAROXETINE HYDROCHLORIDE
     Dosage: 4 MILLIGRAM, ONCE A DAY
     Route: 048
  3. SEROXAT [Suspect]
     Active Substance: PAROXETINE HYDROCHLORIDE
     Indication: PRODUCT USED FOR UNKNOWN INDICATION
     Dosage: UNK
     Route: 065
     Dates: start: 20000907
  4. PAROXETINE HYDROCHLORIDE. [Suspect]
     Active Substance: PAROXETINE HYDROCHLORIDE
     Dosage: (10MG/5ML)300 ML, Q.H.S.
     Route: 048
     Dates: start: 20021116
  5. PAXIL [Suspect]
     Active Substance: PAROXETINE HYDROCHLORIDE
     Indication: PRODUCT USED FOR UNKNOWN INDICATION
     Dosage: UNK
     Route: 065
     Dates: start: 20000907
  6. PAROXETINE HYDROCHLORIDE. [Suspect]
     Active Substance: PAROXETINE HYDROCHLORIDE
     Dosage: 8 MILLIGRAM, ONCE A DAY
     Route: 048
     Dates: start: 20021126
  7. ALPRAZOLAM. [Concomitant]
     Active Substance: ALPRAZOLAM
     Indication: PRODUCT USED FOR UNKNOWN INDICATION
     Dosage: LESS THAN 0.25 UNK
     Route: 065
     Dates: start: 2002
  8. PAROXETINE TABLET [Suspect]
     Active Substance: PAROXETINE
     Dosage: 6 MILLIGRAM, DAILY
     Dates: start: 20030210
  9. FLUPENTIXOL DECANOATE [Suspect]
     Active Substance: FLUPENTIXOL DECANOATE
     Indication: PRODUCT USED FOR UNKNOWN INDICATION
     Dosage: 1 MILLIGRAM, ONCE A DAY
     Route: 065
     Dates: start: 20010912
  10. FLUPENTIXOL DECANOATE [Suspect]
     Active Substance: FLUPENTIXOL DECANOATE
     Dosage: 1 MILLIGRAM, ONCE A DAY
     Route: 065
     Dates: start: 20010927
  11. FLUOXETINE [Concomitant]
     Active Substance: FLUOXETINE HYDROCHLORIDE
     Dosage: 40 MILLIGRAM
  12. PAROXETINE HYDROCHLORIDE. [Suspect]
     Active Substance: PAROXETINE HYDROCHLORIDE
     Indication: PERINATAL DEPRESSION
     Dosage: UNK
     Dates: start: 20021126
  13. PAROXETINE TABLET [Suspect]
     Active Substance: PAROXETINE
     Indication: PERINATAL DEPRESSION
     Dosage: 20 MILLIGRAM, ONCE A DAY
     Route: 065
     Dates: start: 20000907
  14. PAROXETINE HYDROCHLORIDE. [Suspect]
     Active Substance: PAROXETINE HYDROCHLORIDE
     Dosage: 6 MILLIGRAM, ONCE A DAY
     Route: 048
  15. PAROXETINE HYDROCHLORIDE. [Suspect]
     Active Substance: PAROXETINE HYDROCHLORIDE
     Dosage: 2 MILLIGRAM, ONCE A DAY
     Route: 048
  16. FLUOXETINE [Concomitant]
     Active Substance: FLUOXETINE HYDROCHLORIDE
     Indication: PRODUCT USED FOR UNKNOWN INDICATION
     Route: 065

REACTIONS (14)
  - Migraine [Unknown]
  - Thinking abnormal [Unknown]
  - Stress [Unknown]
  - Panic attack [Unknown]
  - Suicidal ideation [Unknown]
  - Confusional state [Unknown]
  - Headache [Unknown]
  - Drug dependence [Unknown]
  - Head titubation [Unknown]
  - Paraesthesia [Unknown]
  - Anxiety [Unknown]
  - Abnormal dreams [Unknown]
  - Nightmare [Unknown]
  - Drug withdrawal syndrome [Unknown]

NARRATIVE: CASE EVENT DATE: 200105
